FAERS Safety Report 21338352 (Version 1)
Quarter: 2022Q3

REPORT INFORMATION
  Report Type: Spontaneous
  Country: IN (occurrence: IN)
  Receive Date: 20220915
  Receipt Date: 20220915
  Transmission Date: 20221026
  Serious: Yes (Death)
  Sender: FDA-Public Use
  Company Number: IN-PFIZER INC-202101059252

PATIENT
  Age: 47 Year
  Sex: Female

DRUGS (11)
  1. PALBOCICLIB [Suspect]
     Active Substance: PALBOCICLIB
     Indication: Breast cancer metastatic
     Dosage: 125 MG, 1X/DAY
     Dates: start: 20210813, end: 20220103
  2. PALBOCICLIB [Suspect]
     Active Substance: PALBOCICLIB
     Dosage: 125 MG, 1X/DAY
     Route: 048
     Dates: end: 202202
  3. FULVESTRANT [Concomitant]
     Active Substance: FULVESTRANT
     Dosage: 500 MG DEEP 1M
  4. CALCIUM\CHOLECALCIFEROL [Concomitant]
     Active Substance: CALCIUM\CHOLECALCIFEROL
     Dosage: 1X/DAY (1-0-0) X 2 WEEKS
  5. URSODIOL [Concomitant]
     Active Substance: URSODIOL
     Dosage: UNK UNK, 2X/DAY (1-0-1 X 10 DAYS)
  6. MONTEK LC [Concomitant]
     Dosage: 1X/DAY BEDTIME
  7. ASCORIL D [DEXTROMETHORPHAN HYDROBROMIDE;MENTHOL;PHENYLPROPANOLAMINE H [Concomitant]
     Dosage: UNK, 2X/DAY
  8. DOMPERIDONE\ESOMEPRAZOLE MAGNESIUM [Concomitant]
     Active Substance: DOMPERIDONE\ESOMEPRAZOLE MAGNESIUM
     Dosage: 1 DF, CYCLIC (1 DF/ 3 WEEKS)
  9. CHOLECALCIFEROL [Concomitant]
     Active Substance: CHOLECALCIFEROL
     Dosage: UNK, 1X/DAY
  10. FUROSEMIDE\SPIRONOLACTONE [Concomitant]
     Active Substance: FUROSEMIDE\SPIRONOLACTONE
     Dosage: UNK, 2X/DAY
  11. LEVOTHYROXINE [Concomitant]
     Active Substance: LEVOTHYROXINE
     Dosage: 150 UG, 1X/DAY

REACTIONS (6)
  - Death [Fatal]
  - Off label use [Unknown]
  - Dysphonia [Unknown]
  - Abdominal distension [Unknown]
  - Blood bilirubin increased [Unknown]
  - Full blood count decreased [Unknown]

NARRATIVE: CASE EVENT DATE: 20220201
